FAERS Safety Report 18107695 (Version 1)
Quarter: 2020Q3

REPORT INFORMATION
  Report Type: Spontaneous
  Country: JP (occurrence: JP)
  Receive Date: 20200803
  Receipt Date: 20200803
  Transmission Date: 20201103
  Serious: Yes (Hospitalization)
  Sender: FDA-Public Use
  Company Number: JP-ANIPHARMA-2020-JP-000258

PATIENT
  Age: 77 Year
  Sex: Female

DRUGS (11)
  1. RIZE [Suspect]
     Active Substance: CLOTIAZEPAM
     Route: 050
  2. CANDESARTAN CILEXETIL. [Suspect]
     Active Substance: CANDESARTAN CILEXETIL
     Indication: PRODUCT USED FOR UNKNOWN INDICATION
     Route: 065
  3. SOLANAX [Suspect]
     Active Substance: ALPRAZOLAM
     Dosage: UNKNOWN DOSE AT NIGHT
     Route: 050
  4. DEPASAN [Suspect]
     Active Substance: SPARTEINE SULFATE
     Route: 048
  5. ROSUVASTATIN. [Suspect]
     Active Substance: ROSUVASTATIN
     Dosage: UNKNOWN DOSE TWICE A WEEK
     Route: 048
  6. CILOSTAZOL. [Suspect]
     Active Substance: CILOSTAZOL
     Route: 050
  7. RIMATIL [Suspect]
     Active Substance: BUCILLAMINE
     Route: 048
  8. EXCELASE [Suspect]
     Active Substance: PANCRELIPASE
     Route: 048
  9. BAYASPIRIN [Suspect]
     Active Substance: ASPIRIN
     Route: 048
  10. MUCOSTA [Suspect]
     Active Substance: REBAMIPIDE
     Route: 048
  11. SELBEX [Suspect]
     Active Substance: TEPRENONE
     Route: 048

REACTIONS (22)
  - Constipation [Unknown]
  - Tooth extraction [Unknown]
  - Insomnia [Unknown]
  - Feeling abnormal [Unknown]
  - Stress [Unknown]
  - Sudden hearing loss [Unknown]
  - Dizziness [Unknown]
  - Musculoskeletal stiffness [Unknown]
  - Muscular weakness [Unknown]
  - Cerebrovascular stenosis [Unknown]
  - Weight decreased [Unknown]
  - Haemorrhage [Unknown]
  - Malaise [Unknown]
  - Fall [Unknown]
  - Peripheral vascular disorder [Unknown]
  - Blood cholesterol increased [Unknown]
  - Blindness [Unknown]
  - Tinnitus [Unknown]
  - Skin wrinkling [Unknown]
  - Headache [Unknown]
  - Hypoaesthesia [Unknown]
  - Oedema peripheral [Unknown]
